FAERS Safety Report 9663924 (Version 2)
Quarter: 2013Q4

REPORT INFORMATION
  Report Type: Spontaneous
  Country: IT (occurrence: IT)
  Receive Date: 20131101
  Receipt Date: 20131210
  Transmission Date: 20140711
  Serious: Yes (Other)
  Sender: FDA-Public Use
  Company Number: IT-UCBSA-101885

PATIENT
  Age: 84 Year
  Sex: Female

DRUGS (9)
  1. NEUPRO [Suspect]
     Indication: PARKINSON^S DISEASE
     Dosage: 2 MG/24 HOUR
     Route: 062
  2. NEUPRO [Suspect]
     Indication: PARKINSON^S DISEASE
     Dosage: 6 MG/24 HOUR
     Route: 062
     Dates: start: 20100101, end: 20131021
  3. MADOPAR [Concomitant]
     Dosage: 100 + 25 MG
  4. EUTIROX [Concomitant]
     Dosage: 75 MCG TABLETS; 1DF DAILY
  5. CARDIOASPIRIN [Concomitant]
     Dosage: 1 DF DAILY
  6. CYTOTEC [Concomitant]
     Dosage: 1 DF DAILY
  7. NATECAL D3 [Concomitant]
     Dosage: 1 DF DAILY
  8. EFFERALGAN [Concomitant]
     Indication: PAIN
     Dosage: 100 MG; 1 DF AS NEEDED
  9. POLASE [Concomitant]
     Dosage: FREQUENCY: CYCLIC

REACTIONS (1)
  - Rash erythematous [Recovered/Resolved]
